FAERS Safety Report 8011429 (Version 2)
Quarter: 2015Q1

REPORT INFORMATION
  Report Type: Spontaneous
  Country: US (occurrence: US)
  Receive Date: 20110627
  Receipt Date: 20150309
  Transmission Date: 20150721
  Serious: Yes (Hospitalization, Other)
  Sender: FDA-Public Use
  Company Number: US-ELI_LILLY_AND_COMPANY-US201106003673

PATIENT
  Sex: Female

DRUGS (7)
  1. LANTUS [Concomitant]
     Active Substance: INSULIN GLARGINE
     Dosage: 4 U, EACH EVENING
  2. LANTUS [Concomitant]
     Active Substance: INSULIN GLARGINE
     Dosage: 7 U, EACH MORNING
  3. HUMALOG [Suspect]
     Active Substance: INSULIN LISPRO
     Indication: TYPE 1 DIABETES MELLITUS
     Dosage: UNK UNK, PRN
     Route: 065
  4. HUMALOG [Suspect]
     Active Substance: INSULIN LISPRO
     Indication: TYPE 1 DIABETES MELLITUS
     Dosage: UNK, PRN
     Route: 065
  5. PREDNISONE. [Suspect]
     Active Substance: PREDNISONE
     Indication: PRODUCT USED FOR UNKNOWN INDICATION
     Route: 065
  6. LANTUS [Concomitant]
     Active Substance: INSULIN GLARGINE
     Dosage: 7 U, EACH EVENING
  7. HUMALOG [Suspect]
     Active Substance: INSULIN LISPRO
     Dosage: UNK, PRN
     Route: 065
     Dates: start: 1993

REACTIONS (25)
  - Visual acuity reduced [Unknown]
  - Connective tissue disorder [Unknown]
  - Vitreous floaters [Unknown]
  - Hypoglycaemic unconsciousness [Unknown]
  - Dupuytren^s contracture [Unknown]
  - Trigger finger [Unknown]
  - Drug dose omission [Unknown]
  - Hypoglycaemic seizure [Unknown]
  - Diabetes mellitus inadequate control [Unknown]
  - Tibia fracture [Unknown]
  - Incorrect dose administered [Unknown]
  - Muscle spasms [Unknown]
  - Diabetic retinopathy [Unknown]
  - Musculoskeletal stiffness [Unknown]
  - Lymphoma [Unknown]
  - Blood glucose decreased [Unknown]
  - Anger [Unknown]
  - Confusional state [Unknown]
  - Blood glucose increased [Unknown]
  - Injection site pain [Unknown]
  - Cardiac disorder [Unknown]
  - Rotator cuff syndrome [Unknown]
  - Cartilage injury [Unknown]
  - Blood glucose fluctuation [Unknown]
  - Carpal tunnel syndrome [Unknown]
